FAERS Safety Report 6015597-8 (Version None)
Quarter: 2008Q4

REPORT INFORMATION
  Report Type: 
  Country: None (occurrence: None)
  Receive Date: 20081219
  Receipt Date: 20081219
  Transmission Date: 20090506
  Serious: Yes (Death)
  Sender: FDA-Public Use
  Company Number: None

PATIENT
  Age: 54 Year
  Sex: Male
  Weight: 121.564 kg

DRUGS (2)
  1. REVLIMID [Suspect]
     Indication: DISEASE RECURRENCE
     Dosage: 20 MG EVERY DAY -D1-21- PO
     Route: 048
     Dates: start: 20081204, end: 20081209
  2. REVLIMID [Suspect]
     Indication: LYMPHOMA
     Dosage: 20 MG EVERY DAY -D1-21- PO
     Route: 048
     Dates: start: 20081204, end: 20081209

REACTIONS (15)
  - AGITATION [None]
  - AMMONIA INCREASED [None]
  - ARRHYTHMIA [None]
  - CONFUSIONAL STATE [None]
  - DELIRIUM [None]
  - DEPRESSED LEVEL OF CONSCIOUSNESS [None]
  - DUODENAL ULCER [None]
  - HAEMATEMESIS [None]
  - HEPATIC ENCEPHALOPATHY [None]
  - METABOLIC ACIDOSIS [None]
  - OESOPHAGEAL CANDIDIASIS [None]
  - RENAL FAILURE [None]
  - RENAL FAILURE ACUTE [None]
  - URINE OUTPUT DECREASED [None]
  - VENTRICULAR ARRHYTHMIA [None]
